FAERS Safety Report 18798489 (Version 1)
Quarter: 2021Q1

REPORT INFORMATION
  Report Type: Spontaneous
  Country: US (occurrence: US)
  Receive Date: 20210127
  Receipt Date: 20210127
  Transmission Date: 20210419
  Serious: No
  Sender: FDA-Public Use
  Company Number: None

PATIENT
  Age: 65 Year
  Sex: Female
  Weight: 96.3 kg

DRUGS (2)
  1. REMDESIVIR. [Suspect]
     Active Substance: REMDESIVIR
     Indication: COVID-19
     Route: 041
     Dates: start: 20210123, end: 20210126
  2. NORMAL SALINE [Concomitant]
     Active Substance: SODIUM CHLORIDE
     Dates: start: 20210123, end: 20210126

REACTIONS (4)
  - Injection site erythema [None]
  - Erythema [None]
  - Injection site pruritus [None]
  - Infusion related reaction [None]

NARRATIVE: CASE EVENT DATE: 20210126
